FAERS Safety Report 6927203-6 (Version None)
Quarter: 2010Q3

REPORT INFORMATION
  Report Type: 
  Country: None (occurrence: None)
  Receive Date: 20100816
  Receipt Date: 20100803
  Transmission Date: 20110219
  Serious: Yes (Hospitalization, Other)
  Sender: FDA-Public Use
  Company Number: US-ELI_LILLY_AND_COMPANY-US201008002650

PATIENT
  Sex: Male
  Weight: 56.1 kg

DRUGS (8)
  1. GEMZAR [Suspect]
     Indication: BONE SARCOMA
  2. MEPACT [Concomitant]
     Indication: BONE SARCOMA
     Dosage: 3 MG, 2/D
     Route: 042
     Dates: start: 20100420, end: 20100625
  3. BACTRIM [Concomitant]
  4. CHOLECALCIFEROL [Concomitant]
  5. HYDROXYZINE PAMOATE [Concomitant]
  6. ZOFRAN [Concomitant]
  7. OXYCODONE [Concomitant]
  8. DOCETAXEL [Concomitant]

REACTIONS (21)
  - ACTIVATED PARTIAL THROMBOPLASTIN TIME ABNORMAL [None]
  - ACTIVATED PARTIAL THROMBOPLASTIN TIME PROLONGED [None]
  - BLOOD ALBUMIN DECREASED [None]
  - BLOOD FIBRINOGEN ABNORMAL [None]
  - BLOOD FIBRINOGEN INCREASED [None]
  - DISSEMINATED INTRAVASCULAR COAGULATION [None]
  - DRUG INEFFECTIVE [None]
  - ERYTHEMA [None]
  - FEELING COLD [None]
  - FIBRIN D DIMER INCREASED [None]
  - HEART RATE DECREASED [None]
  - HYPOTENSION [None]
  - INTERNATIONAL NORMALISED RATIO ABNORMAL [None]
  - OEDEMA PERIPHERAL [None]
  - OFF LABEL USE [None]
  - PROTHROMBIN TIME ABNORMAL [None]
  - PROTHROMBIN TIME PROLONGED [None]
  - PYREXIA [None]
  - SKIN WARM [None]
  - TENDERNESS [None]
  - WHITE BLOOD CELL COUNT INCREASED [None]
